FAERS Safety Report 11208772 (Version 2)
Quarter: 2015Q3

REPORT INFORMATION
  Report Type: Report from Study
  Country: BE (occurrence: BE)
  Receive Date: 20150622
  Receipt Date: 20150825
  Transmission Date: 20151125
  Serious: Yes (Hospitalization)
  Sender: FDA-Public Use
  Company Number: BE-ABBVIE-15P-013-1410632-00

PATIENT
  Sex: Male

DRUGS (4)
  1. DUODOPA [Suspect]
     Active Substance: CARBIDOPA\LEVODOPA
     Indication: PARKINSON^S DISEASE
     Dosage: AM=6ML;CD=2.5ML/HR DURING 16 HRS;ED=2ML
     Route: 050
     Dates: start: 20080331, end: 20130826
  2. PROLOPA [Concomitant]
     Active Substance: BENSERAZIDE\LEVODOPA
     Indication: PRODUCT USED FOR UNKNOWN INDICATION
     Dosage: FORM STRENGTH: 100MG/25MG, 5 PER DAY AS EMERGENCY MEDICATION
  3. DUODOPA [Suspect]
     Active Substance: CARBIDOPA\LEVODOPA
     Dosage: AM=5ML;CD=2.1ML/HR DURING 16HRS; ED=1ML
     Route: 050
     Dates: start: 20140717
  4. DUODOPA [Suspect]
     Active Substance: CARBIDOPA\LEVODOPA
     Dosage: AM=5ML; CD=2.1ML/HR DURING 16HRS; ED=2ML
     Route: 050
     Dates: start: 20130826, end: 20140717

REACTIONS (3)
  - General physical health deterioration [Unknown]
  - Weight decreased [Unknown]
  - Decreased appetite [Unknown]
